FAERS Safety Report 8484809-3 (Version None)
Quarter: 2012Q3

REPORT INFORMATION
  Report Type: 
  Country: None (occurrence: None)
  Receive Date: 20120703
  Receipt Date: 20120628
  Transmission Date: 20120928
  Serious: Yes (Death, Other)
  Sender: FDA-Public Use
  Company Number: JP-JNJFOC-20091001336

PATIENT
  Sex: Female
  Weight: 48 kg

DRUGS (1)
  1. DOXORUBICIN HCL [Suspect]
     Indication: OVARIAN CANCER RECURRENT
     Dosage: CYCLE 1
     Route: 042
     Dates: start: 20090928, end: 20090928

REACTIONS (2)
  - ANAPHYLACTIC REACTION [None]
  - OVARIAN CANCER RECURRENT [None]
